FAERS Safety Report 16644307 (Version 1)
Quarter: 2019Q3

REPORT INFORMATION
  Report Type: Spontaneous
  Country: US (occurrence: US)
  Receive Date: 20190729
  Receipt Date: 20190729
  Transmission Date: 20191004
  Serious: No
  Sender: FDA-Public Use
  Company Number: US-TEVA-2019-US-1084111

PATIENT
  Age: 48 Year
  Sex: Female

DRUGS (5)
  1. LEVOTHYROXINE. [Concomitant]
     Active Substance: LEVOTHYROXINE
     Indication: BASEDOW^S DISEASE
     Dosage: 175 MICROGRAM DAILY;
     Route: 065
  2. PENTOXIFYLLINE. [Suspect]
     Active Substance: PENTOXIFYLLINE
     Indication: THYROID DERMATOPATHY
     Dosage: 1200 MILLIGRAM DAILY;
     Route: 048
  3. TRIAMCINOLONE [Suspect]
     Active Substance: TRIAMCINOLONE
     Indication: THYROID DERMATOPATHY
     Dosage: RECEIVED 10-40MG/CC FOR ONE YEAR
     Route: 026
  4. HYALURONIDASE [Suspect]
     Active Substance: HYALURONIDASE
     Indication: THYROID DERMATOPATHY
     Dosage: RECEIVED 200U/ML FOR 1 YEAR
     Route: 026
  5. CLOBETASOL [Suspect]
     Active Substance: CLOBETASOL
     Indication: THYROID DERMATOPATHY
     Route: 065

REACTIONS (1)
  - Treatment failure [Unknown]
